FAERS Safety Report 7337547-4 (Version None)
Quarter: 2011Q1

REPORT INFORMATION
  Report Type: 
  Country: None (occurrence: None)
  Receive Date: 20110308
  Receipt Date: 20110216
  Transmission Date: 20110831
  Serious: Yes (Death, Other)
  Sender: FDA-Public Use
  Company Number: US-BAYER-200940587NA

PATIENT
  Sex: Female

DRUGS (7)
  1. ASPIRIN [Suspect]
  2. OMNIPAQUE 140 [Concomitant]
     Indication: CATHETERISATION CARDIAC
     Dosage: 200 ML, UNK
     Dates: start: 20040519
  3. TRASYLOL [Suspect]
     Indication: MITRAL VALVE REPAIR
     Route: 042
     Dates: start: 20040618
  4. BENZONATATE [Concomitant]
     Dosage: UNK
     Route: 048
     Dates: start: 20040525
  5. HEPARIN [Concomitant]
  6. TRIAMCINOLONE [Concomitant]
     Dosage: UNK
     Route: 061
     Dates: start: 20040427
  7. TRAZODONE [Concomitant]
     Dosage: UNK
     Route: 048
     Dates: start: 20040316

REACTIONS (24)
  - RENAL IMPAIRMENT [None]
  - PAIN [None]
  - RETROPERITONEAL HAEMATOMA [None]
  - RENAL INJURY [None]
  - ANXIETY [None]
  - FEAR [None]
  - INJURY [None]
  - DEEP VEIN THROMBOSIS [None]
  - RENAL FAILURE [None]
  - STRESS [None]
  - MULTI-ORGAN FAILURE [None]
  - UNEVALUABLE EVENT [None]
  - HEPATIC FAILURE [None]
  - OEDEMA PERIPHERAL [None]
  - HYPOTENSION [None]
  - EMOTIONAL DISTRESS [None]
  - ANHEDONIA [None]
  - ABDOMINAL PAIN [None]
  - TROPONIN INCREASED [None]
  - SEPTIC SHOCK [None]
  - DEATH [None]
  - ACUTE RESPIRATORY DISTRESS SYNDROME [None]
  - CARDIAC ARREST [None]
  - VOMITING [None]
